FAERS Safety Report 13653716 (Version 1)
Quarter: 2017Q2

REPORT INFORMATION
  Report Type: Spontaneous
  Country: FR (occurrence: FR)
  Receive Date: 20170614
  Receipt Date: 20170614
  Transmission Date: 20170830
  Serious: Yes (Other)
  Sender: FDA-Public Use
  Company Number: FR-BAYER-2017-110294

PATIENT
  Age: 33 Year
  Sex: Female

DRUGS (1)
  1. MIRENA [Suspect]
     Active Substance: LEVONORGESTREL
     Indication: CONTRACEPTION
     Dosage: 20 MCG/24HR, CONT
     Route: 015
     Dates: start: 20150602, end: 20170520

REACTIONS (8)
  - Amnesia [Unknown]
  - Seborrhoea [Unknown]
  - Headache [Unknown]
  - Anxiety [Recovering/Resolving]
  - Speech disorder [Unknown]
  - Dyspepsia [Recovered/Resolved]
  - Vaginal discharge [Unknown]
  - Poor quality sleep [Recovered/Resolved]
